FAERS Safety Report 12251335 (Version 2)
Quarter: 2019Q2

REPORT INFORMATION
  Report Type: Spontaneous
  Country: US (occurrence: US)
  Receive Date: 20160410
  Receipt Date: 20190614
  Transmission Date: 20190711
  Serious: No
  Sender: FDA-Public Use
  Company Number: US-JNJFOC-20160319555

PATIENT
  Sex: Male

DRUGS (26)
  1. RISPERDAL [Suspect]
     Active Substance: RISPERIDONE
     Indication: BIPOLAR DISORDER
     Dosage: THE PATIENT WAS TREATED WITH VARYING DOSE OF 0.5 MG TO 1 MG.
     Route: 048
     Dates: start: 200711, end: 200801
  2. RISPERDAL [Suspect]
     Active Substance: RISPERIDONE
     Indication: ATTENTION DEFICIT/HYPERACTIVITY DISORDER
     Dosage: THE PATIENT WAS TREATED WITH VARYING DOSE OF 0.25 MG TO 1 MG.
     Route: 048
     Dates: start: 201003, end: 201004
  3. RISPERDAL [Suspect]
     Active Substance: RISPERIDONE
     Indication: PSYCHOTIC DISORDER
     Dosage: THE PATIENT WAS TREATED WITH VARYING DOSE OF 0.25 MG TO 1 MG.
     Route: 048
     Dates: start: 2011
  4. RISPERDAL [Suspect]
     Active Substance: RISPERIDONE
     Indication: BIPOLAR DISORDER
     Dosage: THE PATIENT WAS TREATED WITH VARYING DOSE OF 0.25 MG TO 1 MG.
     Route: 048
     Dates: start: 2011
  5. RISPERDAL [Suspect]
     Active Substance: RISPERIDONE
     Indication: PSYCHOTIC DISORDER
     Dosage: THE PATIENT WAS TREATED WITH VARYING DOSE OF 0.5 MG TO 1 MG.
     Route: 048
     Dates: start: 200711, end: 200801
  6. RISPERDAL [Suspect]
     Active Substance: RISPERIDONE
     Indication: ATTENTION DEFICIT/HYPERACTIVITY DISORDER
     Route: 048
     Dates: end: 2013
  7. RISPERDAL [Suspect]
     Active Substance: RISPERIDONE
     Indication: PSYCHOTIC DISORDER
     Dosage: THE PATIENT WAS TREATED WITH VARYING DOSE OF 0.25 MG TO 1 MG.
     Route: 048
     Dates: start: 2005
  8. RISPERDAL [Suspect]
     Active Substance: RISPERIDONE
     Indication: PSYCHOTIC DISORDER
     Route: 048
     Dates: start: 201303, end: 201305
  9. RISPERDAL [Suspect]
     Active Substance: RISPERIDONE
     Indication: BIPOLAR DISORDER
     Route: 048
     Dates: end: 2013
  10. RISPERDAL [Suspect]
     Active Substance: RISPERIDONE
     Indication: ATTENTION DEFICIT/HYPERACTIVITY DISORDER
     Route: 048
     Dates: start: 201303, end: 201305
  11. RISPERDAL [Suspect]
     Active Substance: RISPERIDONE
     Indication: PSYCHOTIC DISORDER
     Dosage: THE PATIENT WAS TREATED WITH VARYING DOSE OF 0.25 MG TO 1 MG.
     Route: 048
     Dates: start: 201403, end: 2014
  12. RISPERDAL [Suspect]
     Active Substance: RISPERIDONE
     Indication: ATTENTION DEFICIT/HYPERACTIVITY DISORDER
     Dosage: THE PATIENT WAS TREATED WITH VARYING DOSE OF 0.25 MG TO 1 MG.
     Route: 048
     Dates: start: 2005
  13. RISPERIDONE. [Suspect]
     Active Substance: RISPERIDONE
     Indication: PRODUCT USED FOR UNKNOWN INDICATION
     Route: 048
  14. RISPERDAL [Suspect]
     Active Substance: RISPERIDONE
     Indication: PSYCHOTIC DISORDER
     Route: 048
     Dates: end: 2013
  15. RISPERDAL [Suspect]
     Active Substance: RISPERIDONE
     Indication: BIPOLAR DISORDER
     Dosage: THE PATIENT WAS TREATED WITH VARYING DOSE OF 0.25 MG TO 1 MG.
     Route: 048
     Dates: start: 201403, end: 2014
  16. RISPERDAL [Suspect]
     Active Substance: RISPERIDONE
     Indication: PSYCHOTIC DISORDER
     Dosage: THE PATIENT WAS TREATED WITH VARYING DOSE OF 0.25 MG TO 1 MG.
     Route: 048
     Dates: start: 201003, end: 201004
  17. RISPERDAL [Suspect]
     Active Substance: RISPERIDONE
     Indication: BIPOLAR DISORDER
     Dosage: THE PATIENT WAS TREATED WITH VARYING DOSE OF 0.25 MG TO 1 MG.
     Route: 048
     Dates: start: 2009
  18. RISPERDAL [Suspect]
     Active Substance: RISPERIDONE
     Indication: BIPOLAR DISORDER
     Dosage: THE PATIENT WAS TREATED WITH VARYING DOSE OF 0.25 MG TO 1 MG.
     Route: 048
     Dates: start: 201003, end: 201004
  19. RISPERDAL [Suspect]
     Active Substance: RISPERIDONE
     Indication: ATTENTION DEFICIT/HYPERACTIVITY DISORDER
     Dosage: THE PATIENT WAS TREATED WITH VARYING DOSE OF 0.25 MG TO 1 MG.
     Route: 048
     Dates: start: 2009
  20. RISPERDAL [Suspect]
     Active Substance: RISPERIDONE
     Indication: PSYCHOTIC DISORDER
     Dosage: THE PATIENT WAS TREATED WITH VARYING DOSE OF 0.25 MG TO 1 MG.
     Route: 048
     Dates: start: 2009
  21. RISPERDAL [Suspect]
     Active Substance: RISPERIDONE
     Indication: BIPOLAR DISORDER
     Dosage: THE PATIENT WAS TREATED WITH VARYING DOSE OF 0.25 MG TO 1 MG.
     Route: 048
     Dates: start: 2005
  22. RISPERDAL [Suspect]
     Active Substance: RISPERIDONE
     Indication: BIPOLAR DISORDER
     Route: 048
     Dates: start: 201303, end: 201305
  23. RISPERDAL [Suspect]
     Active Substance: RISPERIDONE
     Indication: ATTENTION DEFICIT/HYPERACTIVITY DISORDER
     Dosage: THE PATIENT WAS TREATED WITH VARYING DOSE OF 0.5 MG TO 1 MG.
     Route: 048
     Dates: start: 200711, end: 200801
  24. RISPERDAL [Suspect]
     Active Substance: RISPERIDONE
     Indication: ATTENTION DEFICIT/HYPERACTIVITY DISORDER
     Dosage: THE PATIENT WAS TREATED WITH VARYING DOSE OF 0.25 MG TO 1 MG.
     Route: 048
     Dates: start: 2011
  25. RISPERDAL [Suspect]
     Active Substance: RISPERIDONE
     Indication: ATTENTION DEFICIT/HYPERACTIVITY DISORDER
     Dosage: THE PATIENT WAS TREATED WITH VARYING DOSE OF 0.25 MG TO 1 MG.
     Route: 048
     Dates: start: 201403, end: 2014
  26. RISPERIDONE. [Suspect]
     Active Substance: RISPERIDONE
     Indication: PRODUCT USED FOR UNKNOWN INDICATION
     Route: 048

REACTIONS (3)
  - Abnormal weight gain [Unknown]
  - Gynaecomastia [Unknown]
  - Hyperglycaemia [Unknown]

NARRATIVE: CASE EVENT DATE: 2005
